FAERS Safety Report 10307641 (Version 1)
Quarter: 2014Q3

REPORT INFORMATION
  Report Type: Spontaneous
  Country: US (occurrence: None)
  Receive Date: 20140714
  Receipt Date: 20140714
  Transmission Date: 20150326
  Serious: Yes (Hospitalization)
  Sender: FDA-Public Use
  Company Number: None

PATIENT
  Age: 50 Year
  Sex: Female

DRUGS (1)
  1. DICLOFENAC [Suspect]
     Active Substance: DICLOFENAC
     Indication: INFECTION
     Dates: start: 20120716, end: 20120816

REACTIONS (7)
  - Hepatitis [None]
  - Hepatic steatosis [None]
  - Drug-induced liver injury [None]
  - Antinuclear antibody positive [None]
  - Autoimmune disorder [None]
  - Hepatotoxicity [None]
  - Infection [None]

NARRATIVE: CASE EVENT DATE: 20120810
